FAERS Safety Report 11575848 (Version 1)
Quarter: 2015Q3

REPORT INFORMATION
  Report Type: Spontaneous
  Country: US (occurrence: US)
  Receive Date: 20150930
  Receipt Date: 20150930
  Transmission Date: 20151125
  Serious: Yes (Hospitalization)
  Sender: FDA-Public Use
  Company Number: US-MALLINCKRODT-T201504495

PATIENT
  Age: 92 Year
  Sex: Female
  Weight: 68 kg

DRUGS (1)
  1. OFIRMEV [Suspect]
     Active Substance: ACETAMINOPHEN
     Indication: POSTOPERATIVE CARE
     Dosage: 1 GRAM EVERY 6 HOURS
     Route: 042

REACTIONS (1)
  - Hepatotoxicity [Recovering/Resolving]
